FAERS Safety Report 6613615-7 (Version None)
Quarter: 2010Q1

REPORT INFORMATION
  Report Type: 
  Country: None (occurrence: None)
  Receive Date: 20100304
  Receipt Date: 20100222
  Transmission Date: 20100710
  Serious: Yes (Other)
  Sender: FDA-Public Use
  Company Number: JP-ROCHE-685842

PATIENT
  Age: 49 Year
  Sex: Female

DRUGS (3)
  1. CELLCEPT [Suspect]
     Indication: PROPHYLAXIS AGAINST TRANSPLANT REJECTION
     Route: 048
  2. CYCLOSPORINE [Concomitant]
  3. PREDNISOLONE [Concomitant]

REACTIONS (2)
  - BLOOD CREATININE INCREASED [None]
  - THROMBOCYTOPENIC PURPURA [None]
